FAERS Safety Report 7197616-9 (Version None)
Quarter: 2010Q4

REPORT INFORMATION
  Report Type: 
  Country: None (occurrence: None)
  Receive Date: 20101214
  Receipt Date: 20101129
  Transmission Date: 20110411
  Serious: Yes (Disabling)
  Sender: FDA-Public Use
  Company Number: AUR-APL-2010-03006

PATIENT
  Age: 69 Year
  Sex: Female

DRUGS (9)
  1. BISOPROLOL FUMARATE [Suspect]
     Indication: ATRIAL FIBRILLATION
     Dosage: 5MG-ORAL
     Route: 048
     Dates: start: 20100401, end: 20100502
  2. ADCAL-D3 [Concomitant]
  3. ASPIRIN [Concomitant]
  4. CETIRIZINE HCL [Concomitant]
  5. CODEINE [Concomitant]
  6. FENTANYL [Concomitant]
  7. LANSOPRAZOLE [Concomitant]
  8. PARACETAMOL [Concomitant]
  9. RISEDRONATE SODIUM [Concomitant]

REACTIONS (3)
  - AMPUTATION [None]
  - OEDEMA PERIPHERAL [None]
  - SKIN ULCER [None]
